FAERS Safety Report 8487492-6 (Version None)
Quarter: 2012Q2

REPORT INFORMATION
  Report Type: 
  Country: None (occurrence: None)
  Receive Date: 20120627
  Receipt Date: 20120620
  Transmission Date: 20120825
  Serious: Yes (Hospitalization)
  Sender: FDA-Public Use
  Company Number: 2012-071

PATIENT
  Age: 29 Year
  Sex: Male
  Weight: 56 kg

DRUGS (13)
  1. BONIVA [Concomitant]
  2. AMITRIPTYLINE HCL [Concomitant]
  3. PRIALT [Suspect]
     Indication: PAIN
     Dosage: SEE IMAGE
     Route: 037
     Dates: start: 20070705
  4. PRIALT [Suspect]
     Indication: PAIN
     Dosage: SEE IMAGE
     Route: 037
     Dates: start: 20090917, end: 20100331
  5. PRIALT [Suspect]
     Indication: PAIN
     Dosage: SEE IMAGE
     Route: 037
     Dates: start: 20100503
  6. PRIALT [Suspect]
     Indication: PAIN
     Dosage: SEE IMAGE
     Route: 037
     Dates: start: 20100331, end: 20100503
  7. BACLOFEN [Suspect]
     Indication: PAIN
     Dosage: 41.67 UG, ONCE/HOUR, INTRATHECAL, 45.84 UG, ONCE/HOUR, 41.67 UG, ONCE/HOUR, INTRATHECAL
     Route: 037
     Dates: start: 20100331, end: 20100503
  8. BACLOFEN [Suspect]
     Indication: PAIN
     Dosage: 41.67 UG, ONCE/HOUR, INTRATHECAL, 45.84 UG, ONCE/HOUR, 41.67 UG, ONCE/HOUR, INTRATHECAL
     Route: 037
     Dates: start: 20100503
  9. BACLOFEN [Suspect]
     Indication: PAIN
     Dosage: 41.67 UG, ONCE/HOUR, INTRATHECAL, 45.84 UG, ONCE/HOUR, 41.67 UG, ONCE/HOUR, INTRATHECAL
     Route: 037
     Dates: start: 20090917, end: 20100331
  10. GEWACALM (DIAZEPAM) [Concomitant]
  11. MIRTAZAPINE [Concomitant]
  12. SEROQUEL XR [Concomitant]
  13. CYMBALTA [Concomitant]

REACTIONS (5)
  - ABDOMINAL PAIN [None]
  - ALCOHOL ABUSE [None]
  - WEIGHT DECREASED [None]
  - GASTRITIS [None]
  - GENERAL PHYSICAL HEALTH DETERIORATION [None]
